FAERS Safety Report 8708512 (Version 2)
Quarter: 2012Q4

REPORT INFORMATION
  Report Type: 
  Country: JP (occurrence: JP)
  Receive Date: 20120806
  Receipt Date: 20120914
  Transmission Date: 20130627
  Serious: Yes (Life-Threatening, Other)
  Sender: FDA-Public Use
  Company Number: JP-SANOFI-AVENTIS-2012SA055444

PATIENT
  Age: 47 Year
  Sex: Male
  Weight: 74.2 kg

DRUGS (8)
  1. MYSLEE [Suspect]
     Indication: SLEEP LOSS
     Route: 048
     Dates: start: 20101129, end: 20110623
  2. PAROXETINE HYDROCHLORIDE [Suspect]
     Indication: DEPRESSION
     Route: 048
     Dates: start: 20101129, end: 20110623
  3. QUETIAPINE FUMARATE [Suspect]
     Indication: DEPRESSION
     Route: 048
     Dates: start: 20101129, end: 20110202
  4. ALLOPURINOL [Suspect]
     Indication: HYPERLIPIDAEMIA
     Route: 048
     Dates: start: 20070611
  5. ITAVASTATIN [Suspect]
     Indication: HYPERLIPIDAEMIA
     Route: 048
     Dates: start: 20070611
  6. DESYREL [Concomitant]
     Dates: start: 20101129, end: 20110623
  7. MIRTAZAPINE [Concomitant]
  8. BROTIZOLAM [Concomitant]
     Dates: start: 20101129, end: 20110623

REACTIONS (2)
  - Diabetes mellitus [Recovered/Resolved]
  - Intentional drug misuse [Unknown]
